FAERS Safety Report 11263600 (Version 1)
Quarter: 2015Q3

REPORT INFORMATION
  Report Type: Report from Study
  Country: CA (occurrence: CA)
  Receive Date: 20150713
  Receipt Date: 20150713
  Transmission Date: 20151125
  Serious: Yes (Hospitalization)
  Sender: FDA-Public Use
  Company Number: CA-ROCHE-1606405

PATIENT
  Sex: Male

DRUGS (13)
  1. METFORMIN [Concomitant]
     Active Substance: METFORMIN HYDROCHLORIDE
  2. ACEBUTOLOL [Concomitant]
     Active Substance: ACEBUTOLOL
  3. JANUVIA [Concomitant]
     Active Substance: SITAGLIPTIN PHOSPHATE
  4. ERIVEDGE [Suspect]
     Active Substance: VISMODEGIB
     Indication: BASAL CELL CARCINOMA
     Route: 048
     Dates: end: 201506
  5. VALSARTAN. [Concomitant]
     Active Substance: VALSARTAN
  6. VOLTAREN [Concomitant]
     Active Substance: DICLOFENAC SODIUM
  7. ATORVASTATIN [Concomitant]
     Active Substance: ATORVASTATIN
  8. SALBUTAMOL [Concomitant]
     Active Substance: ALBUTEROL
  9. SYMBICORT [Concomitant]
     Active Substance: BUDESONIDE\FORMOTEROL FUMARATE DIHYDRATE
  10. AVAMYS [Concomitant]
     Active Substance: FLUTICASONE FUROATE
  11. FUCIDIN [Concomitant]
     Active Substance: FUSIDIC ACID
  12. ROBAXACET [Concomitant]
     Active Substance: ACETAMINOPHEN\METHOCARBAMOL
  13. PROBIOTIC (ENZYMES, INC) [Concomitant]

REACTIONS (1)
  - Hepatitis [Unknown]
